FAERS Safety Report 25570492 (Version 2)
Quarter: 2025Q4

REPORT INFORMATION
  Report Type: Spontaneous
  Country: TR (occurrence: TR)
  Receive Date: 20250717
  Receipt Date: 20251013
  Transmission Date: 20260117
  Serious: Yes (Hospitalization)
  Sender: BRISTOL-MYERS SQUIBB COMPANY
  Company Number: TR-BRISTOL-MYERS SQUIBB COMPANY-2025-098049

PATIENT
  Age: 75 Year
  Sex: Male

DRUGS (1)
  1. NIVOLUMAB [Suspect]
     Active Substance: NIVOLUMAB
     Indication: Small cell lung cancer

REACTIONS (1)
  - Vocal cord paralysis [Not Recovered/Not Resolved]

NARRATIVE: CASE EVENT DATE: 20180401
